FAERS Safety Report 20495017 (Version 2)
Quarter: 2022Q1

REPORT INFORMATION
  Report Type: Other
  Country: CN (occurrence: None)
  Receive Date: 20220221
  Receipt Date: 20220315
  Transmission Date: 20220423
  Serious: Yes (Other)
  Sender: FDA-Public Use
  Company Number: CN-ROCHE-3024324

PATIENT
  Age: 48 Year
  Sex: Male
  Weight: 80 kg

DRUGS (5)
  1. TECENTRIQ [Suspect]
     Active Substance: ATEZOLIZUMAB
     Indication: Hepatocellular carcinoma
     Route: 041
     Dates: start: 20210906
  2. TECENTRIQ [Suspect]
     Active Substance: ATEZOLIZUMAB
     Indication: Metastases to bone
  3. AVASTIN [Suspect]
     Active Substance: BEVACIZUMAB
     Indication: Antiangiogenic therapy
     Route: 041
     Dates: start: 20210927
  4. AVASTIN [Suspect]
     Active Substance: BEVACIZUMAB
     Indication: Hepatocellular carcinoma
  5. AVASTIN [Suspect]
     Active Substance: BEVACIZUMAB
     Indication: Metastases to bone

REACTIONS (2)
  - Renal impairment [Recovered/Resolved]
  - Tooth loss [Recovered/Resolved with Sequelae]

NARRATIVE: CASE EVENT DATE: 20220301
